FAERS Safety Report 5143503-7 (Version None)
Quarter: 2006Q4

REPORT INFORMATION
  Report Type: 
  Country: None (occurrence: None)
  Receive Date: 20061103
  Receipt Date: 20061027
  Transmission Date: 20070319
  Serious: Yes (Hospitalization)
  Sender: FDA-Public Use
  Company Number: FR-GLAXOSMITHKLINE-B0444612A

PATIENT
  Age: 71 Year
  Sex: Male

DRUGS (8)
  1. FORTUM [Suspect]
     Route: 042
     Dates: start: 20061002, end: 20061011
  2. BACTRIM [Suspect]
     Dosage: 6UNIT PER DAY
     Route: 042
     Dates: start: 20060301, end: 20061013
  3. CYMEVAN [Suspect]
     Route: 042
     Dates: start: 20060923, end: 20061004
  4. LEDERFOLINE [Concomitant]
     Route: 065
     Dates: start: 20060922
  5. VALGANCICLOVIR HYDROCHLORIDE [Concomitant]
     Indication: CYTOMEGALOVIRUS INFECTION
     Route: 065
     Dates: start: 20060501
  6. CELLCEPT [Concomitant]
     Indication: IMMUNOSUPPRESSION
     Route: 065
     Dates: start: 20060301
  7. PROGRAF [Concomitant]
     Indication: IMMUNOSUPPRESSION
     Route: 065
     Dates: start: 20060301
  8. CORTICOIDS [Concomitant]
     Indication: IMMUNOSUPPRESSION
     Route: 065
     Dates: start: 20060301

REACTIONS (3)
  - BONE MARROW FAILURE [None]
  - FOLATE DEFICIENCY [None]
  - HISTIOCYTOSIS HAEMATOPHAGIC [None]
